FAERS Safety Report 6299780-2 (Version None)
Quarter: 2009Q3

REPORT INFORMATION
  Report Type: 
  Country: None (occurrence: None)
  Receive Date: 20090806
  Receipt Date: 20090729
  Transmission Date: 20100115
  Serious: Yes (Hospitalization, Other)
  Sender: FDA-Public Use
  Company Number: CA-ABBOTT-09P-028-0561840-00

PATIENT
  Sex: Male

DRUGS (11)
  1. LUPRON DEPOT [Suspect]
     Indication: PROSTATE CANCER
     Dates: start: 20070326
  2. EXTRAL [Concomitant]
     Indication: DRUG USE FOR UNKNOWN INDICATION
  3. NOVOLIN R [Concomitant]
     Indication: DRUG USE FOR UNKNOWN INDICATION
     Dosage: 50/50 8 U QAM + QPM
  4. ACCURETIC [Concomitant]
     Indication: BLOOD PRESSURE MANAGEMENT
     Dosage: 20/25 MG DAILY
  5. NORVASC [Concomitant]
     Indication: DRUG USE FOR UNKNOWN INDICATION
  6. ATENOLOL [Concomitant]
     Indication: DRUG USE FOR UNKNOWN INDICATION
  7. ALLOPURINOL [Concomitant]
     Indication: DRUG USE FOR UNKNOWN INDICATION
  8. LIPITOR [Concomitant]
     Indication: DRUG USE FOR UNKNOWN INDICATION
  9. METFORMIN [Concomitant]
     Indication: DRUG USE FOR UNKNOWN INDICATION
  10. CASODEX [Concomitant]
     Indication: DRUG USE FOR UNKNOWN INDICATION
  11. VESICARE [Concomitant]
     Indication: DRUG USE FOR UNKNOWN INDICATION

REACTIONS (3)
  - HAEMATURIA [None]
  - NEOPLASM PROSTATE [None]
  - PROSTATE CANCER [None]
